FAERS Safety Report 5091397-0 (Version None)
Quarter: 2006Q3

REPORT INFORMATION
  Report Type: 
  Country: None (occurrence: None)
  Receive Date: 20060727
  Receipt Date: 20060414
  Transmission Date: 20061208
  Serious: Yes (Other)
  Sender: FDA-Public Use
  Company Number: 2006052060

PATIENT
  Age: 56 Year
  Sex: Female
  Weight: 60.782 kg

DRUGS (8)
  1. LYRICA [Suspect]
     Indication: FIBROMYALGIA
     Dosage: 150 MG (75 MG,2 IN 1 D)
     Dates: start: 20060101
  2. ZANAFLEX [Suspect]
     Indication: ILL-DEFINED DISORDER
  3. LOVASTATIN [Concomitant]
  4. SOMA [Concomitant]
  5. AMBIEN [Concomitant]
  6. VITAMINS (VITAMINS) [Concomitant]
  7. PRILOSEC [Concomitant]
  8. NORCO [Concomitant]

REACTIONS (6)
  - HEADACHE [None]
  - HYPOAESTHESIA [None]
  - MUSCULOSKELETAL PAIN [None]
  - NECK PAIN [None]
  - PARAESTHESIA [None]
  - PERIPHERAL COLDNESS [None]
